FAERS Safety Report 8570129 (Version 4)
Quarter: 2012Q4

REPORT INFORMATION
  Report Type: 
  Country: FI (occurrence: FI)
  Receive Date: 20120521
  Receipt Date: 20121004
  Transmission Date: 20130627
  Serious: Yes (Other)
  Sender: FDA-Public Use
  Company Number: FI-AMGEN-FINSP2012030642

PATIENT
  Age: 61 Year
  Sex: Male

DRUGS (4)
  1. XGEVA [Suspect]
     Indication: LUNG NEOPLASM MALIGNANT
     Dosage: 120 mg, q4wk
     Route: 058
     Dates: start: 20120103, end: 20120403
  2. XGEVA [Suspect]
     Indication: METASTASES TO BONE
  3. BONEFOS [Suspect]
     Dosage: UNK
     Dates: start: 200903, end: 20111024
  4. VINORELBINE [Concomitant]
     Indication: CHEMOTHERAPY
     Dosage: UNK
     Dates: start: 201112, end: 201204

REACTIONS (1)
  - Osteonecrosis of jaw [Not Recovered/Not Resolved]
